FAERS Safety Report 17952260 (Version 1)
Quarter: 2020Q2

REPORT INFORMATION
  Report Type: Spontaneous
  Country: US (occurrence: US)
  Receive Date: 20200626
  Receipt Date: 20200626
  Transmission Date: 20200714
  Serious: No
  Sender: FDA-Public Use
  Company Number: US-INCYTE CORPORATION-2019IN008902

PATIENT

DRUGS (3)
  1. JAKAFI [Suspect]
     Active Substance: RUXOLITINIB
     Dosage: 10 MG BID QOD ALTERNATING WITH 5 MG BID QOD
     Route: 048
     Dates: start: 20190223
  2. JAKAFI [Suspect]
     Active Substance: RUXOLITINIB
     Indication: MYELOFIBROSIS
     Dosage: 10 MG BID QOD ALTERNATING WITH 5 MG BID QOD
     Route: 048
     Dates: start: 20190223
  3. JAKAFI [Suspect]
     Active Substance: RUXOLITINIB
     Dosage: 10 MILLIGRAM, BID
     Route: 048
     Dates: start: 20191226

REACTIONS (2)
  - Platelet count decreased [Unknown]
  - Ill-defined disorder [Unknown]
